FAERS Safety Report 5527799-5 (Version None)
Quarter: 2007Q4

REPORT INFORMATION
  Report Type: 
  Country: None (occurrence: None)
  Receive Date: 20071128
  Receipt Date: 20071119
  Transmission Date: 20080405
  Serious: Yes (Death)
  Sender: FDA-Public Use
  Company Number: A0686925A

PATIENT
  Age: 24 Year
  Sex: Male

DRUGS (2)
  1. LAMICTAL [Suspect]
     Dosage: 125MG UNKNOWN
     Route: 048
     Dates: start: 20051201, end: 20060201
  2. TYLENOL [Concomitant]

REACTIONS (3)
  - CONVULSION [None]
  - DEATH [None]
  - POSTICTAL STATE [None]
